FAERS Safety Report 15850330 (Version 1)
Quarter: 2019Q1

REPORT INFORMATION
  Report Type: Spontaneous
  Country: US (occurrence: US)
  Receive Date: 20190121
  Receipt Date: 20190121
  Transmission Date: 20190417
  Serious: No
  Sender: FDA-Public Use
  Company Number: US-PFIZER INC-2019021425

PATIENT
  Age: 74 Year
  Sex: Male

DRUGS (7)
  1. LYRICA [Suspect]
     Active Substance: PREGABALIN
     Indication: HERPES ZOSTER
     Dosage: 75 MG, UNK
     Route: 048
  2. LYRICA [Suspect]
     Active Substance: PREGABALIN
     Dosage: 50 MG ONE TIME A DAY
     Route: 048
  3. LYRICA [Suspect]
     Active Substance: PREGABALIN
     Dosage: 50 MG THREE TIMES A DAY
     Route: 048
  4. METOPROLOL TARTRATE. [Concomitant]
     Active Substance: METOPROLOL TARTRATE
     Indication: MYOCARDIAL INFARCTION
     Dosage: 25 MG TAKE HALF IN THE MORNING AND HALF AT NIGHT
  5. LYRICA [Suspect]
     Active Substance: PREGABALIN
     Dosage: 50 MG TWO TIMES A DAY
     Route: 048
  6. LYRICA [Suspect]
     Active Substance: PREGABALIN
     Dosage: 50 MG ONE EVERY OTHER DAY
     Route: 048
  7. LYRICA [Suspect]
     Active Substance: PREGABALIN
     Dosage: 75 MG, UNK ( EVERY TWO DAYS, THE THIRD DAY TAKE ONE MORE, EVERY TWO DAY IS THE THIRD DAY SO LIKE)
     Route: 048

REACTIONS (6)
  - Skin mass [Unknown]
  - Swelling [Unknown]
  - Pruritus [Unknown]
  - Scratch [Unknown]
  - Feeling hot [Unknown]
  - Erythema [Unknown]

NARRATIVE: CASE EVENT DATE: 201901
